FAERS Safety Report 23499836 (Version 1)
Quarter: 2024Q1

REPORT INFORMATION
  Report Type: Spontaneous
  Country: US (occurrence: US)
  Receive Date: 20240208
  Receipt Date: 20240208
  Transmission Date: 20240409
  Serious: Yes (Other)
  Sender: FDA-Public Use
  Company Number: US-STRIDES ARCOLAB LIMITED-2024SP001290

PATIENT

DRUGS (5)
  1. CALCITRIOL [Suspect]
     Active Substance: CALCITRIOL
     Indication: Product used for unknown indication
     Dosage: UNK (BASELINE) (PATIENT MOTHER RECEIVED CALCITROL DURING PREGNANCY)
     Route: 064
  2. CALCITRIOL [Suspect]
     Active Substance: CALCITRIOL
     Dosage: UNK (REQUIREMENT DOUBLED) (PATIENT MOTHER RECEIVED CALCITROL DURING PREGNANCY)
     Route: 064
  3. CALCIUM [Suspect]
     Active Substance: CALCIUM
     Indication: Product used for unknown indication
     Dosage: UNK (BASELINE) (PATIENT MOTHER RECEIVED CALCIUM DURING PREGNANCY)
     Route: 064
  4. CALCIUM [Suspect]
     Active Substance: CALCIUM
     Dosage: UNK (REQUIREMENT DOUBLED)  (PATIENT MOTHER RECEIVED CALCIUM DURING PREGNANCY)
     Route: 064
  5. TUMS [Suspect]
     Active Substance: CALCIUM CARBONATE
     Indication: Product used for unknown indication
     Dosage: UNK (PATIENT MOTHER RECEIVED TUMS DURING PREGNANCY)
     Route: 064

REACTIONS (2)
  - Premature baby [Unknown]
  - Foetal exposure during pregnancy [Unknown]
